FAERS Safety Report 5690560-5 (Version None)
Quarter: 2008Q1

REPORT INFORMATION
  Report Type: 
  Country: None (occurrence: None)
  Receive Date: 20080331
  Receipt Date: 20080331
  Transmission Date: 20080703
  Serious: Yes (Other)
  Sender: FDA-Public Use
  Company Number: None

PATIENT
  Age: 45 Year
  Sex: Female
  Weight: 59.8748 kg

DRUGS (8)
  1. MERREM [Suspect]
     Indication: OSTEOMYELITIS
     Dosage: 1 GRAM EVERY 8 HOURS IV
     Route: 042
     Dates: start: 20080319, end: 20080328
  2. CEFEPIME [Concomitant]
  3. ERTAPENEM [Concomitant]
  4. FILGRASTIM [Concomitant]
  5. CIPROFLOXACIN [Concomitant]
  6. PIPERACILLIN AND TAZOBACTAM [Concomitant]
  7. DIPHENHYDRAMINE [Concomitant]
  8. MEROPENEM [Concomitant]

REACTIONS (1)
  - TOOTH DISCOLOURATION [None]
